FAERS Safety Report 23379472 (Version 3)
Quarter: 2024Q2

REPORT INFORMATION
  Report Type: Spontaneous
  Country: AU (occurrence: AU)
  Receive Date: 20240108
  Receipt Date: 20240507
  Transmission Date: 20240716
  Serious: Yes (Hospitalization, Other)
  Sender: FDA-Public Use
  Company Number: AU-MYLANLABS-2024M1000787

PATIENT
  Sex: Female

DRUGS (1)
  1. CLOZARIL [Suspect]
     Active Substance: CLOZAPINE
     Indication: Schizophrenia
     Dosage: 200 MILLIGRAM
     Route: 048
     Dates: start: 20210809

REACTIONS (3)
  - Hospitalisation [Unknown]
  - COVID-19 [Unknown]
  - Antipsychotic drug level increased [Unknown]
